FAERS Safety Report 6473999-X (Version None)
Quarter: 2009Q4

REPORT INFORMATION
  Report Type: 
  Country: None (occurrence: None)
  Receive Date: 20091130
  Receipt Date: 20091116
  Transmission Date: 20100525
  Serious: Yes (Hospitalization)
  Sender: FDA-Public Use
  Company Number: 09FR005182

PATIENT
  Age: 46 Year
  Sex: Female
  Weight: 69 kg

DRUGS (3)
  1. ACETAMINOPHEN [Suspect]
     Indication: ARTHRITIS
     Dosage: 32 G, SINGLE, ORAL; 1.5 - 2 G/DAY, ORAL
     Route: 048
  2. ACETAMINOPHEN [Suspect]
     Indication: DRUG USE FOR UNKNOWN INDICATION
     Dosage: 32 G, SINGLE, ORAL; 1.5 - 2 G/DAY, ORAL
     Route: 048
  3. CODEINE (CODEINE PHOSPHATE) [Concomitant]

REACTIONS (7)
  - ALANINE AMINOTRANSFERASE INCREASED [None]
  - DIALYSIS [None]
  - LIVER INJURY [None]
  - OVERDOSE [None]
  - PROTHROMBIN TIME SHORTENED [None]
  - RENAL FAILURE ACUTE [None]
  - RENAL TUBULAR NECROSIS [None]
